FAERS Safety Report 23263163 (Version 3)
Quarter: 2024Q2

REPORT INFORMATION
  Report Type: Spontaneous
  Country: FR (occurrence: FR)
  Receive Date: 20231205
  Receipt Date: 20240606
  Transmission Date: 20240715
  Serious: Yes (Hospitalization, Other)
  Sender: FDA-Public Use
  Company Number: FR-Accord-392546

PATIENT
  Age: 39 Year
  Sex: Male
  Weight: 76.0 kg

DRUGS (31)
  1. CARBOPLATIN [Suspect]
     Active Substance: CARBOPLATIN
     Indication: Diffuse large B-cell lymphoma stage III
     Dosage: 5 AUC, QD
     Route: 042
     Dates: start: 20231028, end: 20231028
  2. ETOPOSIDE [Suspect]
     Active Substance: ETOPOSIDE
     Indication: Diffuse large B-cell lymphoma stage III
     Dosage: CYCLE 1 ARM 10
     Route: 042
     Dates: start: 20231027, end: 20231029
  3. IFOSFAMIDE [Suspect]
     Active Substance: IFOSFAMIDE
     Indication: Diffuse large B-cell lymphoma stage III
     Dosage: 5000 MG/M2, CYCLE 1 ARM 10, INFUSION
     Route: 042
     Dates: start: 20231028, end: 20231029
  4. RITUXIMAB [Suspect]
     Active Substance: RITUXIMAB
     Indication: Diffuse large B-cell lymphoma stage III
     Dosage: 375 MG/M2, CYCLE 1 ARM 10
     Route: 042
     Dates: start: 20231027, end: 20231027
  5. EPCORITAMAB [Suspect]
     Active Substance: EPCORITAMAB
     Indication: Diffuse large B-cell lymphoma stage III
     Dosage: 0.8 MG, INTERMEDIATE DOSE, C1D8
     Route: 058
     Dates: start: 20231106, end: 20231106
  6. FOLIC ACID [Concomitant]
     Active Substance: FOLIC ACID
     Dates: start: 20231026
  7. AMOROLFINE HYDROCHLORIDE [Concomitant]
     Active Substance: AMOROLFINE HYDROCHLORIDE
     Dosage: UNK, ONGOING
     Dates: start: 20230909
  8. BACTRIM [Concomitant]
     Active Substance: SULFAMETHOXAZOLE\TRIMETHOPRIM
     Dosage: UNK, ONGOING
     Dates: start: 20231028
  9. SODIUM BICARBONATE [Concomitant]
     Active Substance: SODIUM BICARBONATE
     Dosage: UNK, ONGOING
     Dates: start: 20231027
  10. BISOPROLOL [Concomitant]
     Active Substance: BISOPROLOL\BISOPROLOL FUMARATE
     Dosage: UNK, ONGOING
     Dates: start: 20230218
  11. CICLOPIROX [Concomitant]
     Active Substance: CICLOPIROX\TOCOPHEROL
     Dosage: UNK, ONGOING
     Dates: start: 20230809
  12. POLARAMINE [Concomitant]
     Active Substance: DEXCHLORPHENIRAMINE MALEATE
     Dates: start: 20231106, end: 20231113
  13. LANSOPRAZOLE [Concomitant]
     Active Substance: LANSOPRAZOLE
     Dosage: UNK, ONGOING
     Dates: start: 20231023
  14. ONDANSETRON [Concomitant]
     Active Substance: ONDANSETRON
     Dates: start: 20231027, end: 20231029
  15. ACETAMINOPHEN [Concomitant]
     Active Substance: ACETAMINOPHEN
     Dates: start: 20231106, end: 20231113
  16. VALACYCLOVIR HYDROCHLORIDE [Concomitant]
     Active Substance: VALACYCLOVIR HYDROCHLORIDE
     Dosage: UNK, ONGOING
     Dates: start: 20231028
  17. AZITHROMYCIN [Concomitant]
     Active Substance: AZITHROMYCIN
     Dosage: UNK
     Dates: start: 20231119, end: 20231120
  18. SOLU-MEDROL [Concomitant]
     Active Substance: METHYLPREDNISOLONE SODIUM SUCCINATE
     Dates: start: 20231027, end: 20231027
  19. METRONIDAZOLE [Concomitant]
     Active Substance: METRONIDAZOLE
     Dosage: UNK
     Dates: start: 20231119, end: 20231120
  20. PRIMPERAN [Concomitant]
     Active Substance: METOCLOPRAMIDE HYDROCHLORIDE
     Dosage: UNK
     Dates: start: 20231114, end: 20231114
  21. FILGRASTIM [Concomitant]
     Active Substance: FILGRASTIM
     Dosage: UNK
     Dates: start: 20231101, end: 20231105
  22. PREDNISONE [Concomitant]
     Active Substance: PREDNISONE
     Dosage: QD
     Dates: start: 20231030
  23. ACUPAN [Concomitant]
     Active Substance: NEFOPAM HYDROCHLORIDE
     Dosage: UNK
     Dates: start: 20231114, end: 20231114
  24. FOLIC ACID [Concomitant]
     Active Substance: FOLIC ACID
     Dosage: UNK, ONGOING
     Dates: start: 20231026
  25. PIPERACILLIN SODIUM\TAZOBACTAM SODIUM [Concomitant]
     Active Substance: PIPERACILLIN SODIUM\TAZOBACTAM SODIUM
     Dosage: UNK
     Dates: start: 20231120, end: 20231121
  26. ACETAMINOPHEN [Concomitant]
     Active Substance: ACETAMINOPHEN
     Dosage: UNK
     Dates: start: 20231114, end: 20231115
  27. PREDNISONE [Concomitant]
     Active Substance: PREDNISONE
     Dosage: QD
     Dates: start: 20231031, end: 20231102
  28. PREDNISONE [Concomitant]
     Active Substance: PREDNISONE
     Dosage: QD
     Dates: start: 20231020, end: 20231026
  29. EPCORITAMAB [Suspect]
     Active Substance: EPCORITAMAB
     Indication: Diffuse large B-cell lymphoma stage III
     Dosage: 0.16 MG, C1D1, PRIMING DOSE
     Route: 058
     Dates: start: 20231030, end: 20231030
  30. EPCORITAMAB [Suspect]
     Active Substance: EPCORITAMAB
     Indication: Diffuse large B-cell lymphoma stage III
     Dosage: 48 MG, FULL DOSE, C1D15. PRIOR TO THE EVENT ONSET
     Route: 058
     Dates: start: 20231113
  31. PREDNISONE [Concomitant]
     Active Substance: PREDNISONE
     Dosage: QD
     Dates: start: 20231028, end: 20231029

REACTIONS (4)
  - Pyrexia [Recovered/Resolved]
  - Cytokine release syndrome [Recovered/Resolved]
  - Erythema [Recovered/Resolved]
  - Superficial vein thrombosis [Not Recovered/Not Resolved]

NARRATIVE: CASE EVENT DATE: 20231114
